FAERS Safety Report 11128399 (Version 1)
Quarter: 2015Q2

REPORT INFORMATION
  Report Type: Spontaneous
  Country: US (occurrence: US)
  Receive Date: 20150521
  Receipt Date: 20150521
  Transmission Date: 20150821
  Serious: Yes (Other)
  Sender: FDA-Public Use
  Company Number: US-JNJFOC-20150506038

PATIENT
  Age: 31 Year
  Sex: Male
  Weight: 88.45 kg

DRUGS (2)
  1. INVEGA SUSTENNA [Suspect]
     Active Substance: PALIPERIDONE PALMITATE
     Indication: SCHIZOPHRENIA
     Route: 030
     Dates: start: 2010, end: 20150506
  2. DEPAKOTE [Concomitant]
     Active Substance: DIVALPROEX SODIUM
     Indication: SCHIZOPHRENIA
     Dosage: AT NIGHT
     Route: 048

REACTIONS (4)
  - Mass [Not Recovered/Not Resolved]
  - Injection site mass [Recovered/Resolved]
  - Injection site infection [Unknown]
  - Discomfort [Unknown]

NARRATIVE: CASE EVENT DATE: 201501
